FAERS Safety Report 15196675 (Version 1)
Quarter: 2018Q3

REPORT INFORMATION
  Report Type: Report from Study
  Country: JP (occurrence: JP)
  Receive Date: 20180725
  Receipt Date: 20180725
  Transmission Date: 20181010
  Serious: Yes (Hospitalization)
  Sender: FDA-Public Use
  Company Number: JP-JNJFOC-20150611293

PATIENT
  Age: 61 Year
  Sex: Male
  Weight: 67.12 kg

DRUGS (9)
  1. XARELTO [Suspect]
     Active Substance: RIVAROXABAN
     Indication: ATRIAL FIBRILLATION
     Dosage: 10 MG, QD
     Route: 048
     Dates: start: 20130815
  2. XARELTO [Suspect]
     Active Substance: RIVAROXABAN
     Indication: THROMBOSIS PROPHYLAXIS
     Dosage: 10 MG, QD
     Route: 048
     Dates: start: 20130815
  3. FEBUXOSTAT. [Concomitant]
     Active Substance: FEBUXOSTAT
     Dosage: DAILY DOSE 5MG
     Route: 048
  4. ATELEC [Concomitant]
     Active Substance: CILNIDIPINE
     Dosage: DAILY DOSE 10MG
     Route: 048
  5. METILDIGOXIN [Concomitant]
     Active Substance: METILDIGOXIN
     Dosage: DAILY DOSE 0.1 MG
     Route: 048
  6. XARELTO [Suspect]
     Active Substance: RIVAROXABAN
     Indication: CEREBROVASCULAR ACCIDENT PROPHYLAXIS
     Dosage: 10 MG, QD
     Route: 048
     Dates: start: 20130815
  7. EXFORGE [Concomitant]
     Active Substance: AMLODIPINE BESYLATE\VALSARTAN
     Dosage: DAILY DOSE 1DF
     Route: 048
  8. SELOKEN [Concomitant]
     Active Substance: METOPROLOL
     Dosage: DAILY DOSE 40MG
     Route: 048
  9. TAKEPRON [Concomitant]
     Active Substance: LANSOPRAZOLE
     Route: 048
     Dates: start: 20140109

REACTIONS (4)
  - Stent-graft endoleak [Recovered/Resolved]
  - Anastomotic haemorrhage [Recovered/Resolved]
  - Bronchitis [Recovered/Resolved]
  - Aortic aneurysm [Recovering/Resolving]

NARRATIVE: CASE EVENT DATE: 20141204
